FAERS Safety Report 22362725 (Version 2)
Quarter: 2023Q2

REPORT INFORMATION
  Report Type: Spontaneous
  Country: AU (occurrence: AU)
  Receive Date: 20230524
  Receipt Date: 20230601
  Transmission Date: 20230722
  Serious: Yes (Other)
  Sender: FDA-Public Use
  Company Number: AU-BEH-2023159073

PATIENT
  Age: 28 Year
  Sex: Male

DRUGS (1)
  1. PRIVIGEN [Suspect]
     Active Substance: HUMAN IMMUNOGLOBULIN G
     Indication: Primary immunodeficiency syndrome
     Dosage: 10 GRAM
     Route: 065
     Dates: start: 20230508

REACTIONS (2)
  - Meningitis aseptic [Unknown]
  - Drug intolerance [Unknown]

NARRATIVE: CASE EVENT DATE: 20230508
